FAERS Safety Report 15772575 (Version 1)
Quarter: 2018Q4

REPORT INFORMATION
  Report Type: Spontaneous
  Country: US (occurrence: US)
  Receive Date: 20181228
  Receipt Date: 20181228
  Transmission Date: 20190205
  Serious: No
  Sender: FDA-Public Use
  Company Number: US-SA-2018SA394847

PATIENT
  Sex: Female

DRUGS (3)
  1. TOUJEO [Suspect]
     Active Substance: INSULIN GLARGINE
     Indication: BLOOD GLUCOSE
     Dosage: 40 U, QD
  2. APIDRA [Suspect]
     Active Substance: INSULIN GLULISINE
     Indication: BLOOD GLUCOSE
     Dosage: 30 U, QD
  3. SOLIQUA 100/33 [Suspect]
     Active Substance: INSULIN GLARGINE\LIXISENATIDE
     Indication: DIABETES MELLITUS MANAGEMENT
     Dosage: 40 U, QD

REACTIONS (2)
  - Drug ineffective [Unknown]
  - Off label use [Unknown]
